FAERS Safety Report 6458655-6 (Version None)
Quarter: 2009Q4

REPORT INFORMATION
  Report Type: 
  Country: None (occurrence: None)
  Receive Date: 20091127
  Receipt Date: 20091119
  Transmission Date: 20100525
  Serious: Yes (Other)
  Sender: FDA-Public Use
  Company Number: US-ASTRAZENECA-2009UW20825

PATIENT
  Age: 51 Year
  Sex: Female
  Weight: 78.5 kg

DRUGS (6)
  1. SEROQUEL [Suspect]
     Indication: MENTAL DISORDER
     Route: 048
     Dates: start: 20030101, end: 20050101
  2. CITALOPRAM HYDROBROMIDE [Concomitant]
     Dates: start: 20060101
  3. AMITRIPTYLINE HCL [Concomitant]
     Dates: start: 20060101
  4. XANAX [Concomitant]
     Dates: start: 20040101
  5. WELLBUTRIN [Concomitant]
     Dates: start: 20030101
  6. PAXIL [Concomitant]
     Dates: start: 20030101

REACTIONS (8)
  - BLOOD CHOLESTEROL INCREASED [None]
  - DIZZINESS [None]
  - HEPATITIS B [None]
  - HYPERLIPIDAEMIA [None]
  - OBESITY [None]
  - PNEUMOCYSTIS JIROVECI PNEUMONIA [None]
  - TYPE 2 DIABETES MELLITUS [None]
  - VISION BLURRED [None]
